FAERS Safety Report 23340756 (Version 1)
Quarter: 2023Q4

REPORT INFORMATION
  Report Type: Spontaneous
  Country: GB (occurrence: GB)
  Receive Date: 20231227
  Receipt Date: 20231227
  Transmission Date: 20240110
  Serious: Yes (Disabling)
  Sender: FDA-Public Use
  Company Number: None

PATIENT
  Age: 29 Year
  Weight: 123 kg

DRUGS (1)
  1. MONTELUKAST [Suspect]
     Active Substance: MONTELUKAST SODIUM
     Indication: Sinusitis
     Route: 065
     Dates: start: 20231206, end: 20231213

REACTIONS (5)
  - Insomnia [Unknown]
  - Anxiety [Unknown]
  - Nightmare [Unknown]
  - Irritability [Unknown]
  - Depression [Unknown]

NARRATIVE: CASE EVENT DATE: 20231209
